FAERS Safety Report 4786963-3 (Version None)
Quarter: 2005Q3

REPORT INFORMATION
  Report Type: 
  Country: None (occurrence: None)
  Receive Date: 20050930
  Receipt Date: 20050221
  Transmission Date: 20060218
  Serious: Yes (Hospitalization)
  Sender: FDA-Public Use
  Company Number: 2005FR-00315

PATIENT
  Age: 17 Year
  Sex: Female

DRUGS (1)
  1. IBUPROFEN [Suspect]
     Dosage: 14 G OVERDOSE, ORAL
     Route: 048

REACTIONS (10)
  - ABDOMINAL RIGIDITY [None]
  - DUODENAL PERFORATION [None]
  - HYPERTENSION [None]
  - INTENTIONAL MISUSE [None]
  - NEUTROPHILIA [None]
  - OVERDOSE [None]
  - PYREXIA [None]
  - TACHYCARDIA [None]
  - TACHYPNOEA [None]
  - WHITE BLOOD CELL COUNT INCREASED [None]
